FAERS Safety Report 9336720 (Version 1)
Quarter: 2013Q2

REPORT INFORMATION
  Report Type: Not Available
  Country: GB (occurrence: GB)
  Receive Date: 20130607
  Receipt Date: 20130607
  Transmission Date: 20140414
  Serious: Yes (Other)
  Sender: FDA-Public Use
  Company Number: GB-ASTELLAS-2013EU004569

PATIENT
  Age: 60 Year
  Sex: Female
  Weight: 110 kg

DRUGS (7)
  1. BETMIGA [Suspect]
     Dosage: 50 MG, UID/QD
     Route: 048
     Dates: start: 20130401, end: 20130418
  2. AMITRIPTYLINE [Concomitant]
     Dosage: UNK
     Route: 065
  3. DICLOFENAC [Concomitant]
     Dosage: UNK
     Route: 065
  4. LACTULOSE [Concomitant]
     Dosage: UNK
     Route: 065
  5. LEVOTHYROXINE [Concomitant]
     Dosage: UNK
     Route: 065
  6. OXYCODONE [Concomitant]
     Dosage: UNK
     Route: 065
  7. PARACETAMOL [Concomitant]
     Dosage: UNK
     Route: 065

REACTIONS (11)
  - Hypersensitivity [Recovered/Resolved with Sequelae]
  - Swollen tongue [Recovered/Resolved with Sequelae]
  - Lip swelling [Recovered/Resolved with Sequelae]
  - Eye swelling [Recovered/Resolved with Sequelae]
  - Dyspnoea [Recovered/Resolved with Sequelae]
  - Wheezing [Recovered/Resolved with Sequelae]
  - Rash generalised [Unknown]
  - Blister [Unknown]
  - Pruritus [Recovered/Resolved with Sequelae]
  - Erythema [Unknown]
  - Dyspepsia [Recovered/Resolved with Sequelae]
